FAERS Safety Report 25652601 (Version 1)
Quarter: 2025Q3

REPORT INFORMATION
  Report Type: Report from Study
  Country: US (occurrence: US)
  Receive Date: 20250807
  Receipt Date: 20250807
  Transmission Date: 20251021
  Serious: No
  Sender: SUNOVION
  Company Number: US-SUMITOMO PHARMA SWITZERLAND GMBH-2025SPA009853

PATIENT
  Age: 66 Year
  Sex: Male

DRUGS (32)
  1. ORGOVYX [Suspect]
     Active Substance: RELUGOLIX
     Indication: Prostate cancer
     Route: 048
  2. ORGOVYX [Suspect]
     Active Substance: RELUGOLIX
     Route: 048
  3. ALBUTEROL SULFATE [Concomitant]
     Active Substance: ALBUTEROL SULFATE
  4. ALBUTEROL SULFATE [Concomitant]
     Active Substance: ALBUTEROL SULFATE
  5. ATORVASTATIN CALCIUM [Concomitant]
     Active Substance: ATORVASTATIN CALCIUM
  6. BACTRIM DS [Concomitant]
     Active Substance: SULFAMETHOXAZOLE\TRIMETHOPRIM
  7. BRILINTA [Concomitant]
     Active Substance: TICAGRELOR
  8. CETIRIZINE HCL [Concomitant]
     Active Substance: CETIRIZINE HYDROCHLORIDE
  9. CYCLOBENZAPRINE HYDROCHLORIDE [Concomitant]
     Active Substance: CYCLOBENZAPRINE HYDROCHLORIDE
  10. CIPRO [Concomitant]
     Active Substance: CIPROFLOXACIN HYDROCHLORIDE
  11. DIAZEPAM [Concomitant]
     Active Substance: DIAZEPAM
  12. EPIPEN [Concomitant]
     Active Substance: EPINEPHRINE
  13. FLONASE [Concomitant]
     Active Substance: FLUTICASONE PROPIONATE
  14. HYDROCHLOROTHIAZIDE [Concomitant]
     Active Substance: HYDROCHLOROTHIAZIDE
  15. LATANOPROST [Concomitant]
     Active Substance: LATANOPROST
  16. LEVOFLOXACIN [Concomitant]
     Active Substance: LEVOFLOXACIN
  17. LINZESS [Concomitant]
     Active Substance: LINACLOTIDE
  18. LISINOPRIL [Concomitant]
     Active Substance: LISINOPRIL
  19. METOPROLOL SUCCINATE [Concomitant]
     Active Substance: METOPROLOL SUCCINATE
  20. MOMETASONE FUROATE [Concomitant]
     Active Substance: MOMETASONE FUROATE
  21. Adult multivitamin [Concomitant]
  22. MUPIROCIN [Concomitant]
     Active Substance: MUPIROCIN
  23. NALOXONE HCL [Concomitant]
     Active Substance: NALOXONE HYDROCHLORIDE
  24. NIFEDIPINE [Concomitant]
     Active Substance: NIFEDIPINE
  25. NITROGLYCERIN [Concomitant]
     Active Substance: NITROGLYCERIN
  26. PERCOCET [Concomitant]
     Active Substance: ACETAMINOPHEN\OXYCODONE HYDROCHLORIDE
  27. OXYBUTYNIN CHLORIDE [Concomitant]
     Active Substance: OXYBUTYNIN CHLORIDE
  28. HYALURONIC ACID [Concomitant]
     Active Substance: HYALURONIC ACID
  29. POTASSIUM CHLORIDE [Concomitant]
     Active Substance: POTASSIUM CHLORIDE
  30. PYRIDIUM [Concomitant]
     Active Substance: PHENAZOPYRIDINE
  31. TAMSULOSIN HYDROCHLORIDE [Concomitant]
     Active Substance: TAMSULOSIN HYDROCHLORIDE
  32. TRAMADOL HCL [Concomitant]
     Active Substance: TRAMADOL HYDROCHLORIDE

REACTIONS (2)
  - Hot flush [Unknown]
  - Product dose omission issue [Recovered/Resolved]
